FAERS Safety Report 16704978 (Version 1)
Quarter: 2019Q3

REPORT INFORMATION
  Report Type: Spontaneous
  Country: PL (occurrence: PL)
  Receive Date: 20190814
  Receipt Date: 20190814
  Transmission Date: 20191004
  Serious: Yes (Death, Life-Threatening, Disabling, Other)
  Sender: FDA-Public Use
  Company Number: PL-BAXTER-2019BAX015449

PATIENT
  Age: 67 Year
  Sex: Female
  Weight: 70 kg

DRUGS (45)
  1. INJECTIO GLUCOSI 10% BAXTER [Suspect]
     Active Substance: DEXTROSE MONOHYDRATE
     Route: 042
     Dates: start: 20181118, end: 20181125
  2. GENSULIN R [Suspect]
     Active Substance: INSULIN HUMAN
     Indication: DIABETES MELLITUS
     Route: 042
     Dates: start: 20181116, end: 20181116
  3. GENSULIN R [Suspect]
     Active Substance: INSULIN HUMAN
     Route: 042
     Dates: start: 20181119, end: 20181119
  4. IMIPENEM/CILASTATIN KABI [Suspect]
     Active Substance: CILASTATIN SODIUM\IMIPENEM
     Indication: NOSOCOMIAL INFECTION
     Dosage: DOSAGE: 4 G/DAY
     Route: 042
     Dates: start: 20181117, end: 20181125
  5. VITACON [Concomitant]
     Indication: PRODUCT USED FOR UNKNOWN INDICATION
     Dosage: DOSE: 2G/200 ML
     Route: 042
     Dates: start: 20181117, end: 20181117
  6. PYRALGIN [Concomitant]
     Indication: PRODUCT USED FOR UNKNOWN INDICATION
     Dosage: DOSE: 2.5 MG/100 ML ON 15/10/2018?           2.5 MG/100 ML ON 01/11/2018 (IF NECESSARY)
     Route: 042
  7. INJECTIO GLUCOSI 10% BAXTER [Suspect]
     Active Substance: DEXTROSE MONOHYDRATE
     Indication: PRODUCT USED FOR UNKNOWN INDICATION
     Route: 042
     Dates: start: 20181116, end: 20181116
  8. INJECTIO GLUCOSI 10% BAXTER [Suspect]
     Active Substance: DEXTROSE MONOHYDRATE
     Route: 042
     Dates: start: 20181117, end: 20181117
  9. GENSULIN R [Suspect]
     Active Substance: INSULIN HUMAN
     Dosage: INTRAVENOUS INFUSION OF INSULIN BETWEEN 2 AND 7, 1 UNIT PER HOUR
     Route: 042
     Dates: start: 20181123, end: 20181123
  10. VANCOMYCIN [Suspect]
     Active Substance: VANCOMYCIN
     Indication: KLEBSIELLA INFECTION
  11. CORDARONE [Concomitant]
     Active Substance: AMIODARONE HYDROCHLORIDE
     Indication: PRODUCT USED FOR UNKNOWN INDICATION
     Dosage: DOSE: 900 MG/DAY
     Route: 041
     Dates: start: 20181115, end: 20181118
  12. FUROSEMIDE. [Concomitant]
     Active Substance: FUROSEMIDE
     Indication: PRODUCT USED FOR UNKNOWN INDICATION
     Dosage: DOSAGE: 5 MG/HOUR
     Route: 042
     Dates: start: 20181013, end: 20181023
  13. GENSULIN R [Suspect]
     Active Substance: INSULIN HUMAN
     Dosage: 56 UNITS OF INSULIN (2 UNITS PER HOUR BETWEEN HOURS 7 AM TILL 7 PM - 13 HOURS PLUS TWO TIMES 15 UNIT
     Route: 042
     Dates: start: 20181124, end: 20181124
  14. DEXAVEN [Suspect]
     Active Substance: DEXAMETHASONE
     Indication: PRODUCT USED FOR UNKNOWN INDICATION
     Dosage: DOSE: 8 MG/DAY
     Route: 042
     Dates: start: 20181122, end: 20181125
  15. VANCOMYCIN [Suspect]
     Active Substance: VANCOMYCIN
     Indication: STAPHYLOCOCCAL INFECTION
  16. CORHYDRON [Concomitant]
     Indication: PRODUCT USED FOR UNKNOWN INDICATION
     Dosage: DOSE: 400 MG/DAY
     Route: 042
     Dates: start: 20181116, end: 20181121
  17. AMANTIX [Concomitant]
     Indication: PRODUCT USED FOR UNKNOWN INDICATION
     Dosage: DOSE: 500 ML (5H INFUSION)
     Route: 042
     Dates: start: 20181115, end: 20181117
  18. METOCARD ZK [Concomitant]
     Active Substance: METOPROLOL TARTRATE
     Indication: PRODUCT USED FOR UNKNOWN INDICATION
     Dosage: DOSE: 95 MG
     Route: 048
     Dates: start: 20181016, end: 20181115
  19. VANCOMYCIN [Suspect]
     Active Substance: VANCOMYCIN
     Indication: CLOSTRIDIUM DIFFICILE INFECTION
  20. DIGOXIN. [Concomitant]
     Active Substance: DIGOXIN
     Indication: PRODUCT USED FOR UNKNOWN INDICATION
     Dosage: DOSE: 1 G
     Route: 042
     Dates: start: 20181015, end: 20181015
  21. FUROSEMIDE. [Concomitant]
     Active Substance: FUROSEMIDE
     Dosage: DOSAGE: 40 MG/DAY
     Route: 042
     Dates: start: 20181024, end: 20181101
  22. MEMOTROPIL [Suspect]
     Active Substance: PIRACETAM
     Indication: PRODUCT USED FOR UNKNOWN INDICATION
     Dosage: DOSE: 2.4 G/DAY. DATE OF DRUG ADMINISTRATION: 24/10/2018-15/11/2018; 16/11/2018-25/11/2018
     Route: 042
  23. GENSULIN R [Suspect]
     Active Substance: INSULIN HUMAN
     Route: 042
     Dates: start: 20181118, end: 20181118
  24. GENSULIN R [Suspect]
     Active Substance: INSULIN HUMAN
     Route: 042
     Dates: start: 20181123, end: 20181123
  25. GENSULIN R [Suspect]
     Active Substance: INSULIN HUMAN
     Route: 042
     Dates: start: 20181121, end: 20181121
  26. MORPHINE [Suspect]
     Active Substance: MORPHINE
     Indication: PRODUCT USED FOR UNKNOWN INDICATION
     Dosage: DOSAGE: 60 MG+5 MG/H FOR 17 HOURS=145 MG/DAY
     Route: 042
     Dates: start: 20181124, end: 20181125
  27. LEVONOR (NOREPINEPHRINE BITARTRATE) [Suspect]
     Active Substance: NOREPINEPHRINE BITARTRATE
     Indication: PRODUCT USED FOR UNKNOWN INDICATION
     Dosage: DATE OF DRUG ADMINISTRATION AND DOSAGE: ?1.4 MG/HOUR FROM 12/10/2018 TO 16/10/2018?4 MG/HOUR FROM 16
     Route: 042
  28. OXYNORM [Concomitant]
     Active Substance: OXYCODONE HYDROCHLORIDE
     Indication: PRODUCT USED FOR UNKNOWN INDICATION
     Dosage: DOSAGE: 2 MG/HOUR. DATES OF DRUG ADMINISTRATION: FROM 12/10/2018 TO 18/10/2018; FROM 15/11/2018 TO 2
     Route: 042
  29. SODIUM BICARBONATE. [Concomitant]
     Active Substance: SODIUM BICARBONATE
     Indication: PRODUCT USED FOR UNKNOWN INDICATION
     Dosage: DOSE: 100 MG
     Route: 042
     Dates: start: 20181115, end: 20181118
  30. KWETAPLEX [Concomitant]
     Active Substance: QUETIAPINE FUMARATE
     Indication: PRODUCT USED FOR UNKNOWN INDICATION
     Dosage: DOSE: 50 MG/DAY
     Route: 048
     Dates: start: 20181017, end: 20181101
  31. GENSULIN R [Suspect]
     Active Substance: INSULIN HUMAN
     Route: 042
     Dates: start: 20181117, end: 20181117
  32. VANCOMYCIN [Suspect]
     Active Substance: VANCOMYCIN
     Indication: SERRATIA INFECTION
     Dosage: DATES OF DRUG ADMINISTRATION AND DOSAGE: 1,5 G/DAY ON 27/10/2018. FROM 28/10/2018 TO 09/11/2018 1G/D
     Route: 048
  33. VANCOMYCIN [Suspect]
     Active Substance: VANCOMYCIN
     Indication: STENOTROPHOMONAS INFECTION
  34. HEPA-MERZ (ORNITHINE ASPARTATE) [Suspect]
     Active Substance: ORNITHINE ASPARTATE
     Indication: PRODUCT USED FOR UNKNOWN INDICATION
     Dosage: DOSE: 20 MG/DAY
     Route: 041
     Dates: start: 20181116, end: 20181125
  35. VIREGYT-K [Concomitant]
     Indication: PRODUCT USED FOR UNKNOWN INDICATION
     Dosage: DOSE: 50 MG/DAY
     Route: 048
     Dates: start: 20181024, end: 20181114
  36. PARACETAMOL [Concomitant]
     Active Substance: ACETAMINOPHEN
     Indication: PRODUCT USED FOR UNKNOWN INDICATION
     Dosage: DOSE: 1 G/DAY
     Route: 042
     Dates: start: 20181015, end: 20181015
  37. MEROPENEM. [Concomitant]
     Active Substance: MEROPENEM
     Indication: PRODUCT USED FOR UNKNOWN INDICATION
     Dosage: DOSE: 3G/DAY/300 ML
     Route: 042
     Dates: start: 20181014, end: 20181020
  38. GENSULIN R [Suspect]
     Active Substance: INSULIN HUMAN
     Route: 042
     Dates: start: 20181120, end: 20181120
  39. GENSULIN R [Suspect]
     Active Substance: INSULIN HUMAN
     Route: 042
     Dates: start: 20181122, end: 20181122
  40. VANCOMYCIN [Suspect]
     Active Substance: VANCOMYCIN
     Indication: PROTEUS INFECTION
     Dosage: DATES OF DRUG ADMINISTRATION: 15/10/2018-21/10/2018 WITH BREAKS DESCRIBED IN CASE NARRATIVE. FROM 24
     Route: 042
  41. IPP [OMEPRAZOLE] [Suspect]
     Active Substance: OMEPRAZOLE
     Indication: PRODUCT USED FOR UNKNOWN INDICATION
     Dosage: DOSE: 40 MG/DAY FROM 15/10/2018 TO 15/11/2018?80 MG/DAY FROM 16/11/2018 TO 25/11/2018
     Route: 042
  42. COSMOFER [Concomitant]
     Active Substance: IRON DEXTRAN
     Indication: PRODUCT USED FOR UNKNOWN INDICATION
     Dosage: DOSE: 1G/100 ML
     Route: 042
     Dates: start: 20181017, end: 20181019
  43. GENSULIN R [Suspect]
     Active Substance: INSULIN HUMAN
     Dosage: INFUSION OF INSULIN WAS CONTINUED.
     Route: 042
     Dates: start: 20181125, end: 20181125
  44. CLEXANE [Concomitant]
     Active Substance: ENOXAPARIN SODIUM
     Indication: PRODUCT USED FOR UNKNOWN INDICATION
     Dosage: NO INFORMATION ON DOSAGE
     Route: 042
     Dates: start: 20181015, end: 20181115
  45. BETALOC [Concomitant]
     Active Substance: METOPROLOL TARTRATE
     Indication: PRODUCT USED FOR UNKNOWN INDICATION
     Dosage: DOSE: 20 MG/DAY
     Route: 042
     Dates: start: 20181015, end: 20181015

REACTIONS (34)
  - Creatinine renal clearance decreased [Fatal]
  - Blood pressure decreased [Fatal]
  - Anisocytosis [Fatal]
  - Central nervous system injury [Fatal]
  - Petechiae [Fatal]
  - Drug level above therapeutic [Fatal]
  - Liver injury [Fatal]
  - Chromaturia [Fatal]
  - Blood bilirubin increased [Fatal]
  - Haemolytic anaemia [Fatal]
  - Bradycardia [Fatal]
  - Acidosis [Fatal]
  - Hypotonia [Fatal]
  - Tachyarrhythmia [Fatal]
  - Blood urea increased [Fatal]
  - Splenic injury [Fatal]
  - Prescribed overdose [Fatal]
  - Hypoxia [Fatal]
  - Macrocytosis [Fatal]
  - Thrombocytopenia [Fatal]
  - Oliguria [Fatal]
  - Hepatitis fulminant [Fatal]
  - Hypoglycaemia [Fatal]
  - Hyperaemia [Fatal]
  - Hyperkalaemia [Fatal]
  - Tachycardia [Fatal]
  - Loss of consciousness [Fatal]
  - Red blood cell count decreased [Fatal]
  - Hypochromasia [Fatal]
  - Heart rate increased [Fatal]
  - Renal injury [Fatal]
  - Hyperchloraemia [Fatal]
  - Haemoglobin decreased [Fatal]
  - Blood creatinine increased [Fatal]

NARRATIVE: CASE EVENT DATE: 20181017
